FAERS Safety Report 14063312 (Version 1)
Quarter: 2017Q4

REPORT INFORMATION
  Report Type: Spontaneous
  Country: US (occurrence: US)
  Receive Date: 20171009
  Receipt Date: 20171009
  Transmission Date: 20180321
  Serious: No
  Sender: FDA-Public Use
  Company Number: US-SUNOVION-2017SUN004242

PATIENT
  Sex: Female

DRUGS (2)
  1. LATUDA [Suspect]
     Active Substance: LURASIDONE HYDROCHLORIDE
     Dosage: UNKNOWN
     Route: 048
  2. DEPAKOTE [Concomitant]
     Active Substance: DIVALPROEX SODIUM
     Dosage: UNKNOWN

REACTIONS (8)
  - Hyperhidrosis [Unknown]
  - Abdominal discomfort [Unknown]
  - Dyspnoea [Unknown]
  - Feeling hot [Unknown]
  - Skin odour abnormal [Unknown]
  - Breast tenderness [Unknown]
  - Thirst [Unknown]
  - Confusional state [Unknown]
